FAERS Safety Report 20008729 (Version 1)
Quarter: 2021Q4

REPORT INFORMATION
  Report Type: Spontaneous
  Country: FR (occurrence: FR)
  Receive Date: 20211028
  Receipt Date: 20211028
  Transmission Date: 20220303
  Serious: Yes (Hospitalization)
  Sender: FDA-Public Use
  Company Number: FR-ABBVIE-21K-056-4138389-00

PATIENT
  Age: 42 Year
  Sex: Male
  Weight: 103 kg

DRUGS (3)
  1. DEPAKOTE [Suspect]
     Active Substance: DIVALPROEX SODIUM
     Indication: Product used for unknown indication
     Dosage: TOTAL
     Route: 048
     Dates: start: 20181208, end: 20181208
  2. QUETIAPINE FUMARATE [Suspect]
     Active Substance: QUETIAPINE FUMARATE
     Indication: Product used for unknown indication
     Dosage: TOTAL
     Route: 048
     Dates: start: 20181208, end: 20181208
  3. DOLIPRANE [Suspect]
     Active Substance: ACETAMINOPHEN
     Indication: Product used for unknown indication
     Dosage: TOTAL
     Route: 048
     Dates: start: 20181208, end: 20181208

REACTIONS (5)
  - Depressed level of consciousness [Recovered/Resolved]
  - Blood lactic acid increased [Recovered/Resolved]
  - Overdose [Unknown]
  - Hypotension [Recovered/Resolved]
  - Liver injury [Recovered/Resolved]

NARRATIVE: CASE EVENT DATE: 20181208
